FAERS Safety Report 8814356 (Version 4)
Quarter: 2013Q3

REPORT INFORMATION
  Report Type: Spontaneous
  Country: FR (occurrence: FR)
  Receive Date: 20120928
  Receipt Date: 20130801
  Transmission Date: 20140515
  Serious: Yes (Hospitalization, Other)
  Sender: FDA-Public Use
  Company Number: FR-009507513-2012SP027410

PATIENT
  Age: 55 Year
  Sex: Female

DRUGS (8)
  1. VICTRELIS [Suspect]
     Indication: HEPATITIS C
     Dosage: 1 DF, QD
     Route: 048
     Dates: start: 20120126, end: 20120404
  2. PEGASYS [Suspect]
     Indication: HEPATITIS C
     Route: 058
     Dates: start: 20111214, end: 20120404
  3. COPEGUS [Suspect]
     Indication: HEPATITIS C
     Route: 048
     Dates: start: 20111214, end: 20120404
  4. ISENTRESS [Concomitant]
     Indication: HIV INFECTION
     Dates: start: 20110622
  5. EMTRICITABINE (+) TENOFOVIR DISOPROXIL FUMARATE [Concomitant]
     Indication: HIV INFECTION
     Dates: start: 20110622
  6. ROCEPHIN [Concomitant]
     Indication: PYELONEPHRITIS
  7. FLAGYL [Concomitant]
     Indication: PYELONEPHRITIS
  8. GENTAMICIN SULFATE [Concomitant]
     Indication: PYELONEPHRITIS

REACTIONS (2)
  - Drug reaction with eosinophilia and systemic symptoms [Not Recovered/Not Resolved]
  - Pyelonephritis [Unknown]
